FAERS Safety Report 17036392 (Version 1)
Quarter: 2019Q4

REPORT INFORMATION
  Report Type: Spontaneous
  Country: BR (occurrence: BR)
  Receive Date: 20191115
  Receipt Date: 20191115
  Transmission Date: 20200122
  Serious: Yes (Other)
  Sender: FDA-Public Use
  Company Number: BR-ROCHE-2464226

PATIENT
  Sex: Male
  Weight: 15 kg

DRUGS (8)
  1. ETANERCEPT [Concomitant]
     Active Substance: ETANERCEPT
     Indication: STILL^S DISEASE
     Route: 065
     Dates: start: 201902
  2. IBUPROFEN. [Concomitant]
     Active Substance: IBUPROFEN
     Indication: STILL^S DISEASE
  3. METHYLPREDNISOLONE. [Concomitant]
     Active Substance: METHYLPREDNISOLONE
     Indication: STILL^S DISEASE
  4. METHOTREXATE. [Concomitant]
     Active Substance: METHOTREXATE
     Indication: STILL^S DISEASE
     Route: 065
     Dates: start: 201608, end: 201710
  5. PREDNISOLONE. [Concomitant]
     Active Substance: PREDNISOLONE
     Indication: STILL^S DISEASE
     Dosage: 2.0 MG/KG/DAY.
     Route: 065
  6. ABATACEPT [Concomitant]
     Active Substance: ABATACEPT
     Indication: STILL^S DISEASE
     Route: 065
     Dates: start: 201802, end: 201902
  7. ACTEMRA [Suspect]
     Active Substance: TOCILIZUMAB
     Indication: STILL^S DISEASE
     Route: 065
     Dates: start: 201408, end: 201608
  8. CANAKINUMAB. [Concomitant]
     Active Substance: CANAKINUMAB
     Indication: STILL^S DISEASE
     Route: 065
     Dates: start: 201702, end: 201810

REACTIONS (7)
  - Livedo reticularis [Unknown]
  - Bronchospasm [Unknown]
  - Drug ineffective [Unknown]
  - Synovitis [Unknown]
  - Vomiting [Unknown]
  - Tachycardia [Unknown]
  - Cyanosis [Unknown]
